FAERS Safety Report 10236892 (Version 3)
Quarter: 2020Q1

REPORT INFORMATION
  Report Type: Spontaneous
  Country: IT (occurrence: IT)
  Receive Date: 20140613
  Receipt Date: 20200113
  Transmission Date: 20200409
  Serious: Yes (Death, Hospitalization)
  Sender: FDA-Public Use
  Company Number: IT-PFIZER INC-2014161012

PATIENT
  Age: 80 Year
  Sex: Female

DRUGS (24)
  1. TAZOCIN [Suspect]
     Active Substance: PIPERACILLIN SODIUM\TAZOBACTAM SODIUM
     Indication: PNEUMONIA BACTERIAL
     Dosage: 9 G, DAILY
     Route: 030
     Dates: start: 20140408, end: 20140428
  2. FOLINA [Concomitant]
     Dosage: UNK
     Route: 048
  3. TIKLID [Suspect]
     Active Substance: TICLOPIDINE HYDROCHLORIDE
     Dosage: 2 DF, DAILY
     Route: 048
     Dates: start: 20140409, end: 20140429
  4. ACETYLCYSTEINE. [Suspect]
     Active Substance: ACETYLCYSTEINE
     Dosage: 600 MG, THRICE
     Dates: start: 20140514, end: 20140515
  5. AIRCORT [Concomitant]
     Dosage: UNK
     Route: 055
  6. CLENIL [Suspect]
     Active Substance: BECLOMETHASONE DIPROPIONATE
     Dosage: UNK
     Route: 055
     Dates: start: 20140412, end: 20140516
  7. ATEM [Suspect]
     Active Substance: IPRATROPIUM BROMIDE
     Dosage: UNK
     Route: 055
     Dates: start: 20140412, end: 20140516
  8. XAGRID [Concomitant]
     Active Substance: ANAGRELIDE HYDROCHLORIDE
     Indication: MYELOPROLIFERATIVE NEOPLASM
     Dosage: 0.5 MG, UNK
     Route: 048
  9. SEREVENT DISKUS [Concomitant]
     Active Substance: SALMETEROL XINAFOATE
     Indication: ASTHMA
     Dosage: 4 DF, UNK
     Route: 055
  10. IOMERON [Suspect]
     Active Substance: IOMEPROL
     Indication: ARTERIOGRAM
     Dosage: 30 ML, UNK
     Route: 042
     Dates: start: 20140514
  11. TAVOR [Concomitant]
     Indication: INSOMNIA
     Dosage: 2.5 MG, UNK
  12. LASIX FOR INJECTION [Concomitant]
     Dosage: 1 DF, UNK
     Route: 030
  13. INVANZ [Suspect]
     Active Substance: ERTAPENEM SODIUM
     Indication: PNEUMONIA BACTERIAL
     Dosage: 1 G, DAILY
     Route: 042
  14. ACICLIN [Suspect]
     Active Substance: ACYCLOVIR
     Indication: GENITAL HERPES
     Dosage: 1200 MG, DAILY
     Route: 048
  15. KANRENOL [Suspect]
     Active Substance: CANRENOATE POTASSIUM
     Dosage: 1 DF, DAILY
     Dates: start: 20140512, end: 20140525
  16. BRONCOVALEAS [Suspect]
     Active Substance: ALBUTEROL
     Dosage: 7 DROPS, UNK
     Route: 055
     Dates: start: 20140412, end: 20140516
  17. OMEPRAZOLE. [Concomitant]
     Active Substance: OMEPRAZOLE
     Dosage: 40 MG, UNK
     Route: 048
  18. CALCIPARINA [Suspect]
     Active Substance: HEPARIN CALCIUM
     Indication: DEEP VEIN THROMBOSIS
     Dosage: 0.6 ML, DAILY
     Route: 058
     Dates: start: 20140513, end: 20140605
  19. CETIRIZINA TEVA [Suspect]
     Active Substance: CETIRIZINE HYDROCHLORIDE
     Dosage: 10 MG, DAILY
     Route: 048
  20. CONTRAMAL [Suspect]
     Active Substance: TRAMADOL HYDROCHLORIDE
     Dosage: 20 DROPS , DAILY
     Route: 048
     Dates: start: 20140409
  21. MOVICOL [Suspect]
     Active Substance: POLYETHYLENE GLYCOL 3350\POTASSIUM CHLORIDE\SODIUM BICARBONATE\SODIUM CHLORIDE
     Dosage: 2 DF, AS NEEDED
     Dates: start: 20140513, end: 20140519
  22. VANCOMICINA HIKMA [Suspect]
     Active Substance: VANCOMYCIN HYDROCHLORIDE
     Indication: PNEUMONIA BACTERIAL
     Dosage: 2 G, DAILY
     Route: 042
  23. LEVOFLOXACINA KABI [Suspect]
     Active Substance: LEVOFLOXACIN
     Indication: PNEUMONIA BACTERIAL
     Dosage: 1 DF, DAILY
     Route: 042
     Dates: start: 20140409, end: 20140429
  24. CLEXANE [Suspect]
     Active Substance: ENOXAPARIN SODIUM
     Indication: THROMBOSIS PROPHYLAXIS
     Dosage: 4000 IU, DAILY
     Route: 058
     Dates: start: 20140417, end: 20140418

REACTIONS (5)
  - Death [Fatal]
  - Haematidrosis [Recovering/Resolving]
  - Drug reaction with eosinophilia and systemic symptoms [Recovering/Resolving]
  - Generalised oedema [Recovering/Resolving]
  - Skin exfoliation [Recovering/Resolving]

NARRATIVE: CASE EVENT DATE: 20140418
